FAERS Safety Report 23328927 (Version 1)
Quarter: 2023Q4

REPORT INFORMATION
  Report Type: Spontaneous
  Country: US (occurrence: US)
  Receive Date: 20231222
  Receipt Date: 20231222
  Transmission Date: 20240110
  Serious: Yes (Other)
  Sender: FDA-Public Use
  Company Number: US-UCBSA-2023038491

PATIENT
  Sex: Female
  Weight: 99.773 kg

DRUGS (1)
  1. CIMZIA [Suspect]
     Active Substance: CERTOLIZUMAB PEGOL
     Indication: Rheumatoid arthritis
     Dosage: 200 MILLIGRAM, EV 2 WEEKS(QOW)
     Route: 058
     Dates: start: 202305

REACTIONS (6)
  - Nasal septal operation [Unknown]
  - Injection site erythema [Recovered/Resolved]
  - Injection site warmth [Recovered/Resolved]
  - Nasopharyngitis [Unknown]
  - Pain [Unknown]
  - Hypersensitivity [Unknown]

NARRATIVE: CASE EVENT DATE: 20230101
